FAERS Safety Report 17898199 (Version 1)
Quarter: 2020Q2

REPORT INFORMATION
  Report Type: Spontaneous
  Country: US (occurrence: US)
  Receive Date: 20200615
  Receipt Date: 20200615
  Transmission Date: 20200714
  Serious: No
  Sender: FDA-Public Use
  Company Number: US-PERRIGO-20US006251

PATIENT
  Age: 32 Year
  Sex: Female
  Weight: 117.91 kg

DRUGS (2)
  1. BENADRYL [Concomitant]
     Active Substance: DIPHENHYDRAMINE HYDROCHLORIDE
     Indication: HYPERSENSITIVITY
     Dosage: UNK
     Route: 065
     Dates: start: 2015
  2. ALBUTEROL SULFATE. [Suspect]
     Active Substance: ALBUTEROL SULFATE
     Indication: DYSPNOEA
     Dosage: 90 TO 180 MCG, 4 TO 5 TIMES
     Route: 055
     Dates: start: 20200421, end: 20200427

REACTIONS (5)
  - Dysphonia [Not Recovered/Not Resolved]
  - Oropharyngeal discomfort [Not Recovered/Not Resolved]
  - Rales [Not Recovered/Not Resolved]
  - Drug ineffective [Unknown]
  - Device delivery system issue [Recovered/Resolved]

NARRATIVE: CASE EVENT DATE: 20200421
